FAERS Safety Report 4896979-4 (Version None)
Quarter: 2006Q1

REPORT INFORMATION
  Report Type: 
  Country: None (occurrence: None)
  Receive Date: 20060127
  Receipt Date: 20060113
  Transmission Date: 20060701
  Serious: Yes (Hospitalization)
  Sender: FDA-Public Use
  Company Number: DEU-2005-0001852

PATIENT
  Age: 65 Year
  Sex: Female
  Weight: 80 kg

DRUGS (2)
  1. OXYCODONE HCL [Suspect]
     Indication: PAIN
     Dosage: 80 MG, BID, ORAL
     Route: 048
     Dates: start: 20050607, end: 20051125
  2. ANTIDEPRESSANTS () [Suspect]
     Indication: DEPRESSION
     Dosage: 60 MG, BID,ORAL
     Route: 048
     Dates: start: 20050707, end: 20051125

REACTIONS (8)
  - CONDITION AGGRAVATED [None]
  - DEPRESSION [None]
  - GENERAL PHYSICAL HEALTH DETERIORATION [None]
  - HEPATIC ENZYME INCREASED [None]
  - PERSEVERATION [None]
  - PSYCHOTIC DISORDER [None]
  - SOMNOLENCE [None]
  - SPEECH DISORDER [None]
